FAERS Safety Report 8652308 (Version 2)
Quarter: 2013Q3

REPORT INFORMATION
  Report Type: Report from Study
  Country: US (occurrence: US)
  Receive Date: 20120706
  Receipt Date: 20130816
  Transmission Date: 20140515
  Serious: Yes (Hospitalization)
  Sender: FDA-Public Use
  Company Number: US-ROCHE-1083752

PATIENT
  Age: 42 Year
  Sex: Male

DRUGS (9)
  1. PEG-INTERFERON ALFA 2A [Suspect]
     Indication: CHRONIC HEPATITIS C
     Route: 058
     Dates: start: 20120425
  2. RIBAVIRIN [Suspect]
     Indication: CHRONIC HEPATITIS C
     Route: 048
     Dates: start: 20120425
  3. DACLATASVIR [Suspect]
     Indication: CHRONIC HEPATITIS C
     Route: 048
     Dates: start: 20120425
  4. ACETAMINOPHEN [Concomitant]
     Route: 065
     Dates: start: 20120501
  5. PROMETHAZINE [Concomitant]
     Route: 065
     Dates: start: 20120509
  6. GABAPENTIN [Concomitant]
     Route: 065
     Dates: start: 201111
  7. BACLOFEN [Concomitant]
     Route: 065
     Dates: start: 2010
  8. TRAMADOL [Concomitant]
     Route: 065
     Dates: start: 2010
  9. HYDROCODONE BITARTRATE [Concomitant]
     Route: 065
     Dates: start: 20120309

REACTIONS (3)
  - Chest pain [Recovered/Resolved]
  - Syncope [Recovered/Resolved]
  - Headache [Recovered/Resolved]
